FAERS Safety Report 12312473 (Version 3)
Quarter: 2017Q2

REPORT INFORMATION
  Report Type: Report from Study
  Country: US (occurrence: US)
  Receive Date: 20160428
  Receipt Date: 20170621
  Transmission Date: 20170830
  Serious: Yes (Hospitalization)
  Sender: FDA-Public Use
  Company Number: US-ROCHE-1730525

PATIENT
  Age: 75 Year
  Sex: Female
  Weight: 61.5 kg

DRUGS (44)
  1. LACTULOSE. [Concomitant]
     Active Substance: LACTULOSE
     Indication: CONSTIPATION
     Route: 065
     Dates: start: 20160311, end: 20160313
  2. CYCLOPHOSPHAMIDE. [Suspect]
     Active Substance: CYCLOPHOSPHAMIDE
     Indication: NON-HODGKIN^S LYMPHOMA
     Dosage: 750 MILLIGRAMS PER SQUARE METER (MG/M^2) ADMINISTERED INTRAVENOUSLY (IV) ON DAY 1 OF EACH 21-DAY CYC
     Route: 042
     Dates: start: 20160315
  3. DIPHENHYDRAMINE. [Concomitant]
     Active Substance: DIPHENHYDRAMINE
     Indication: PREMEDICATION
     Route: 065
     Dates: start: 20160315, end: 20160315
  4. ENOXAPARIN [Concomitant]
     Active Substance: ENOXAPARIN
     Indication: DEEP VEIN THROMBOSIS
     Route: 065
     Dates: start: 20160313, end: 20160319
  5. ESZOPICLONE. [Concomitant]
     Active Substance: ESZOPICLONE
     Indication: INSOMNIA
     Route: 065
     Dates: start: 20160310, end: 20160318
  6. LEVALBUTEROL. [Concomitant]
     Active Substance: LEVALBUTEROL
     Indication: DYSPNOEA
     Route: 065
     Dates: start: 20160316, end: 20160318
  7. NORMAL SALINE [Concomitant]
     Active Substance: SODIUM CHLORIDE
     Indication: PREMEDICATION
     Route: 065
     Dates: start: 20160310, end: 20160318
  8. MIDAZOLAM [Concomitant]
     Active Substance: MIDAZOLAM HYDROCHLORIDE
     Indication: ANXIETY
     Route: 065
     Dates: start: 20160302, end: 20160302
  9. SENNA [Concomitant]
     Active Substance: SENNA LEAF\SENNOSIDES\SENNOSIDES A AND B
     Indication: CONSTIPATION
     Route: 065
     Dates: start: 20160313, end: 20161009
  10. PALONOSETRON [Concomitant]
     Active Substance: PALONOSETRON
     Indication: PREMEDICATION
     Route: 065
     Dates: start: 20160315, end: 20160315
  11. PEGFILGRASTIM [Concomitant]
     Active Substance: PEGFILGRASTIM
     Indication: FEBRILE NEUTROPENIA
     Route: 065
     Dates: start: 20160317, end: 20160317
  12. SALMETEROL [Concomitant]
     Active Substance: SALMETEROL
     Indication: DYSPNOEA
     Route: 065
     Dates: start: 20160311, end: 20160319
  13. FAMCICLOVIR. [Concomitant]
     Active Substance: FAMCICLOVIR
     Route: 065
     Dates: start: 20160315
  14. ASMANEX [Concomitant]
     Active Substance: MOMETASONE FUROATE
     Indication: DYSPNOEA
     Route: 065
     Dates: start: 20160225
  15. NAPROXEN. [Concomitant]
     Active Substance: NAPROXEN
     Indication: MUSCULOSKELETAL PAIN
     Route: 065
     Dates: start: 20160225, end: 20160311
  16. VENETOCLAX [Suspect]
     Active Substance: VENETOCLAX
     Dosage: (C1D9-C1D10)
     Route: 048
     Dates: start: 20160323, end: 20160324
  17. MOMETASONE [Concomitant]
     Active Substance: MOMETASONE
     Indication: DYSPNOEA
     Route: 065
     Dates: start: 20160313, end: 20160319
  18. LORAZEPAM. [Concomitant]
     Active Substance: LORAZEPAM
     Indication: ANXIETY
     Route: 065
     Dates: start: 20160311, end: 20160311
  19. MAGNESIUM SULFATE. [Concomitant]
     Active Substance: MAGNESIUM SULFATE
     Route: 065
     Dates: start: 20160311, end: 20160311
  20. RBC TRANSFUSION [Concomitant]
     Indication: ANAEMIA
     Route: 065
     Dates: start: 20160310, end: 20160311
  21. PREDNISONE. [Suspect]
     Active Substance: PREDNISONE
     Indication: NON-HODGKIN^S LYMPHOMA
     Dosage: 100 MG PER DAY ORALLY ON DAYS 1-5 OF EACH 21-DAY CYCLE UP TO CYCLE 6. MOST RECENT DOSE PRIOR TO EVEN
     Route: 048
     Dates: start: 20160315
  22. DEXAMETHASONE. [Concomitant]
     Active Substance: DEXAMETHASONE
     Indication: PREMEDICATION
     Route: 065
     Dates: start: 20150315, end: 20160315
  23. DOCUSATE SODIUM. [Concomitant]
     Active Substance: DOCUSATE SODIUM
     Indication: CONSTIPATION
     Route: 065
     Dates: start: 20160311, end: 20160316
  24. POTASSIUM CHLORIDE. [Concomitant]
     Active Substance: POTASSIUM CHLORIDE
     Indication: PREMEDICATION
     Route: 065
     Dates: start: 20160316, end: 20160319
  25. PREGABALIN. [Concomitant]
     Active Substance: PREGABALIN
     Indication: ANALGESIC THERAPY
     Route: 065
     Dates: start: 20160310, end: 20160319
  26. OMEPRAZOLE. [Concomitant]
     Active Substance: OMEPRAZOLE
     Route: 065
     Dates: start: 20160315, end: 20170524
  27. RBC TRANSFUSION [Concomitant]
     Route: 065
     Dates: start: 20160316, end: 20160316
  28. ACETAMINOPHEN. [Concomitant]
     Active Substance: ACETAMINOPHEN
     Indication: PREMEDICATION
     Route: 065
     Dates: start: 20160315, end: 20160315
  29. MAGNESIUM HYDROXIDE. [Concomitant]
     Active Substance: MAGNESIUM HYDROXIDE
     Indication: CONSTIPATION
     Route: 065
     Dates: start: 20160314, end: 20160315
  30. CHOLECALCIFEROL [Concomitant]
     Active Substance: CHOLECALCIFEROL
     Indication: OSTEOPOROSIS
  31. IPRATROPIUM BROMIDE. [Concomitant]
     Active Substance: IPRATROPIUM BROMIDE
     Indication: DYSPNOEA
  32. RASBURICASE [Concomitant]
     Active Substance: RASBURICASE
     Route: 065
     Dates: start: 20160310, end: 20160310
  33. RITUXIMAB [Suspect]
     Active Substance: RITUXIMAB
     Indication: NON-HODGKIN^S LYMPHOMA
     Dosage: 375 MG/M^2 DOSE WILL BE ADMINISTERED IV ON DAY 1 OF EVERY 21-DAY CYCLE. MOST RECENT DOSE PRIOR TO EV
     Route: 042
     Dates: start: 20160315
  34. FUROSEMIDE. [Concomitant]
     Active Substance: FUROSEMIDE
     Indication: PREMEDICATION
     Route: 065
     Dates: start: 20160316, end: 20160319
  35. PANTOPRAZOLE [Concomitant]
     Active Substance: PANTOPRAZOLE
     Route: 065
     Dates: start: 20160312, end: 20161009
  36. DOXORUBICIN [Suspect]
     Active Substance: DOXORUBICIN
     Indication: NON-HODGKIN^S LYMPHOMA
     Dosage: 50 MG/M^2 ADMINISTERED IV ON DAY 1 OF EACH 21-DAY CYCLE UP TO CYCLE 6. MOST RECENT DOSE PRIOR TO EVE
     Route: 042
     Dates: start: 20160315
  37. FLAGYL [Concomitant]
     Active Substance: METRONIDAZOLE\METRONIDAZOLE HYDROCHLORIDE
     Indication: ENTEROCOLITIS
     Route: 065
     Dates: start: 20160315, end: 20160323
  38. NORMOSOL-R [Concomitant]
     Active Substance: MAGNESIUM CHLORIDE\POTASSIUM CHLORIDE\SODIUM ACETATE ANHYDROUS\SODIUM CHLORIDE\SODIUM GLUCONATE
     Route: 065
     Dates: start: 20160312, end: 20160312
  39. VENETOCLAX [Suspect]
     Active Substance: VENETOCLAX
     Indication: NON-HODGKIN^S LYMPHOMA
     Dosage: ON 19/MAR/2016, SHE RECEIVED THE MOST RECENT DOSE OF VENETOCLAX AT 800 MG PRIOR TO EVENT ONSET.
     Route: 048
     Dates: start: 20160318
  40. VINCRISTINE [Suspect]
     Active Substance: VINCRISTINE
     Indication: NON-HODGKIN^S LYMPHOMA
     Dosage: 1.4 MG/M^2 (MAXIMUM 2 MG) ADMINISTERED IV ON DAY 1 OF EACH 21-DAY CYCLE UP TO CYCLE 6. MOST RECENT D
     Route: 042
     Dates: start: 20160315
  41. ALLOPURINOL. [Concomitant]
     Active Substance: ALLOPURINOL
     Indication: BLOOD URIC ACID INCREASED
     Route: 065
     Dates: start: 20160311, end: 20160319
  42. FOSAPREPITANT [Concomitant]
     Active Substance: FOSAPREPITANT
     Indication: PREMEDICATION
     Route: 065
     Dates: start: 20160315, end: 20160315
  43. ASMANEX [Concomitant]
     Active Substance: MOMETASONE FUROATE
     Indication: CHRONIC OBSTRUCTIVE PULMONARY DISEASE
  44. IPRATROPIUM BROMIDE. [Concomitant]
     Active Substance: IPRATROPIUM BROMIDE
     Indication: CHRONIC OBSTRUCTIVE PULMONARY DISEASE
     Route: 065
     Dates: start: 20160316, end: 20160316

REACTIONS (1)
  - Upper gastrointestinal haemorrhage [Recovered/Resolved]

NARRATIVE: CASE EVENT DATE: 20160321
